FAERS Safety Report 5134117-3 (Version None)
Quarter: 2006Q4

REPORT INFORMATION
  Report Type: 
  Country: None (occurrence: None)
  Receive Date: 20061024
  Receipt Date: 20061012
  Transmission Date: 20070319
  Serious: No
  Sender: FDA-Public Use
  Company Number: JP-AVENTIS-200613196JP

PATIENT
  Age: 79 Year
  Sex: Female

DRUGS (11)
  1. ALLEGRA [Suspect]
     Indication: DERMATITIS
     Route: 048
     Dates: start: 20060912, end: 20060915
  2. MAINTATE [Suspect]
     Indication: HYPERTENSION
     Route: 048
  3. MEILAX [Suspect]
     Indication: NEUROSIS
     Route: 048
  4. CEPHADOL [Suspect]
     Indication: NEUROSIS
     Route: 048
  5. PANDEL                             /00028608/ [Concomitant]
     Indication: DERMATITIS
     Route: 061
     Dates: start: 20060914
  6. SATOSALBE [Concomitant]
     Indication: DERMATITIS
     Route: 061
     Dates: start: 20060914
  7. LANDEL [Concomitant]
     Indication: HYPERTENSION
     Route: 048
     Dates: start: 20060912
  8. JUVELA                             /00110503/ [Concomitant]
     Indication: NEUROSIS
     Route: 048
     Dates: start: 20060912
  9. METHYCOBAL                         /00056201/ [Concomitant]
     Indication: NEUROSIS
     Route: 048
     Dates: start: 20060912
  10. RINDERON VG [Concomitant]
     Indication: DERMATITIS
     Route: 061
     Dates: start: 20060914
  11. RINDERON VA [Concomitant]
     Indication: DERMATITIS
     Route: 061
     Dates: start: 20060912, end: 20060913

REACTIONS (1)
  - VISUAL ACUITY REDUCED [None]
